FAERS Safety Report 6309627-3 (Version None)
Quarter: 2009Q3

REPORT INFORMATION
  Report Type: 
  Country: None (occurrence: None)
  Receive Date: 20090814
  Receipt Date: 20090803
  Transmission Date: 20100115
  Serious: Yes (Hospitalization, Other)
  Sender: FDA-Public Use
  Company Number: GB-NOVOPROD-286506

PATIENT
  Sex: Female

DRUGS (1)
  1. KLIOVANCE [Suspect]
     Indication: BONE DENSITY DECREASED
     Dates: end: 20090324

REACTIONS (1)
  - MYOCARDIAL INFARCTION [None]
